FAERS Safety Report 5721563-X (Version None)
Quarter: 2008Q2

REPORT INFORMATION
  Report Type: 
  Country: None (occurrence: None)
  Receive Date: 20080429
  Receipt Date: 20070328
  Transmission Date: 20081010
  Serious: No
  Sender: FDA-Public Use
  Company Number: US-ASTRAZENECA-2007UW06270

PATIENT
  Age: 33 Year
  Sex: Female

DRUGS (1)
  1. NEXIUM [Suspect]
     Indication: DYSPEPSIA
     Route: 048
     Dates: start: 20070327

REACTIONS (2)
  - HEADACHE [None]
  - PAIN [None]
